FAERS Safety Report 8501026-9 (Version None)
Quarter: 2012Q2

REPORT INFORMATION
  Report Type: 
  Country: None (occurrence: None)
  Receive Date: 20120405
  Receipt Date: 20110211
  Transmission Date: 20120825
  Serious: Yes (Hospitalization)
  Sender: FDA-Public Use
  Company Number: PHHY2011US12614

PATIENT
  Sex: Male

DRUGS (2)
  1. CELEBREX [Concomitant]
  2. RECLAST [Suspect]
     Dosage: , INFUSION

REACTIONS (4)
  - MUSCULOSKELETAL CHEST PAIN [None]
  - ABASIA [None]
  - MOVEMENT DISORDER [None]
  - MUSCULOSKELETAL STIFFNESS [None]
